FAERS Safety Report 6535479-2 (Version None)
Quarter: 2010Q1

REPORT INFORMATION
  Report Type: 
  Country: None (occurrence: None)
  Receive Date: 20100111
  Receipt Date: 20100111
  Transmission Date: 20100710
  Serious: No
  Sender: FDA-Public Use
  Company Number: None

PATIENT
  Sex: Female
  Weight: 66.6788 kg

DRUGS (1)
  1. BONIVA [Suspect]
     Indication: OSTEOPOROSIS PROPHYLAXIS
     Dosage: 150 MG ONCE A MONTH BY MOUTH
     Route: 048
     Dates: start: 20090105

REACTIONS (8)
  - ARTHRITIS [None]
  - ASTHENIA [None]
  - HYPOAESTHESIA [None]
  - JOINT CREPITATION [None]
  - OEDEMA PERIPHERAL [None]
  - PAIN IN EXTREMITY [None]
  - SKIN DISCOLOURATION [None]
  - TRIGGER FINGER [None]
